FAERS Safety Report 18846360 (Version 1)
Quarter: 2021Q1

REPORT INFORMATION
  Report Type: Report from Study
  Country: CA (occurrence: CA)
  Receive Date: 20210203
  Receipt Date: 20210203
  Transmission Date: 20210419
  Serious: No
  Sender: FDA-Public Use
  Company Number: CA-EXELIXIS-CABO-20030306

PATIENT
  Age: 61 Year
  Sex: Male

DRUGS (14)
  1. CANDESARTAN. [Concomitant]
     Active Substance: CANDESARTAN
  2. CABOMETYX [Suspect]
     Active Substance: CABOZANTINIB S-MALATE
     Dosage: 20 MG, QD (FREQUENCY CHANGED TO EVERY 21 DAYS FROM 28 DAYS CYCLE)
     Route: 048
     Dates: start: 20200914, end: 20201005
  3. LEVOTHYROXINE SODIUM. [Concomitant]
     Active Substance: LEVOTHYROXINE SODIUM
  4. TAMSULOSIN [Concomitant]
     Active Substance: TAMSULOSIN
  5. SUTENT [Concomitant]
     Active Substance: SUNITINIB MALATE
  6. CALCIUM [Concomitant]
     Active Substance: CALCIUM
  7. AMLODIPINE [Concomitant]
     Active Substance: AMLODIPINE BESYLATE
  8. VITAMIN D [Concomitant]
     Active Substance: VITAMIN D NOS
  9. CABOMETYX [Suspect]
     Active Substance: CABOZANTINIB S-MALATE
     Indication: RENAL CELL CARCINOMA
     Dosage: 40 MG, QD
     Route: 048
     Dates: start: 20200414
  10. CABOMETYX [Suspect]
     Active Substance: CABOZANTINIB S-MALATE
     Dosage: 20 MG, QD
     Route: 048
  11. APIXABAN [Concomitant]
     Active Substance: APIXABAN
  12. ROSUVASTATIN. [Concomitant]
     Active Substance: ROSUVASTATIN
  13. BISOPROLOL [Concomitant]
     Active Substance: BISOPROLOL
  14. PANTOPRAZOLE [Concomitant]
     Active Substance: PANTOPRAZOLE

REACTIONS (4)
  - Inappropriate schedule of product administration [Unknown]
  - Headache [Unknown]
  - Blood pressure increased [Recovered/Resolved]
  - Nausea [Unknown]

NARRATIVE: CASE EVENT DATE: 20200914
